FAERS Safety Report 6130744-5 (Version None)
Quarter: 2009Q1

REPORT INFORMATION
  Report Type: 
  Country: None (occurrence: None)
  Receive Date: 20090325
  Receipt Date: 20090316
  Transmission Date: 20090719
  Serious: Yes (Hospitalization, Other)
  Sender: FDA-Public Use
  Company Number: GB-BAYER-200910756BNE

PATIENT
  Age: 67 Year
  Sex: Male

DRUGS (1)
  1. CIPROFLOXACIN [Suspect]
     Indication: CATHETER SITE PAIN
     Dosage: TOTAL DAILY DOSE: 500 MG
     Dates: start: 20090302

REACTIONS (10)
  - AGITATION [None]
  - BLADDER SPASM [None]
  - BLOOD URINE PRESENT [None]
  - CRYING [None]
  - DEPRESSION [None]
  - DYSPHAGIA [None]
  - HAEMATEMESIS [None]
  - HALLUCINATION [None]
  - HYPOGEUSIA [None]
  - MUSCULAR WEAKNESS [None]
